FAERS Safety Report 13905651 (Version 1)
Quarter: 2017Q3

REPORT INFORMATION
  Report Type: Spontaneous
  Country: DE (occurrence: DE)
  Receive Date: 20170825
  Receipt Date: 20170825
  Transmission Date: 20171127
  Serious: Yes (Life-Threatening)
  Sender: FDA-Public Use
  Company Number: DE-UCBSA-2017030080

PATIENT
  Sex: Male
  Weight: 80 kg

DRUGS (5)
  1. VIMPAT [Suspect]
     Active Substance: LACOSAMIDE
     Indication: EPILEPSY
     Dosage: 400 MG/DAY
     Dates: start: 201604
  2. RISPERDON [Concomitant]
     Active Substance: RISPERIDONE
     Indication: MENTAL DISORDER
  3. MELPERONE [Concomitant]
     Active Substance: MELPERONE
     Indication: MENTAL DISORDER
  4. BRIVIACT [Suspect]
     Active Substance: BRIVARACETAM
     Indication: EPILEPSY
     Dosage: 400 MG /DAY
     Dates: start: 201604
  5. LYRICA [Concomitant]
     Active Substance: PREGABALIN
     Indication: MENTAL DISORDER

REACTIONS (6)
  - Off label use [Unknown]
  - Overdose [Unknown]
  - Generalised tonic-clonic seizure [Unknown]
  - Drug ineffective [Unknown]
  - Partial seizures [Not Recovered/Not Resolved]
  - Change in seizure presentation [Unknown]

NARRATIVE: CASE EVENT DATE: 2016
